FAERS Safety Report 9642919 (Version 2)
Quarter: 2013Q4

REPORT INFORMATION
  Report Type: Report from Study
  Country: US (occurrence: US)
  Receive Date: 20131024
  Receipt Date: 20131024
  Transmission Date: 20140711
  Serious: Yes (Hospitalization, Other)
  Sender: FDA-Public Use
  Company Number: PHEH2012US025602

PATIENT
  Age: 76 Year
  Sex: Female

DRUGS (2)
  1. GLEEVEC [Suspect]
     Indication: GASTROINTESTINAL STROMAL TUMOUR
     Dosage: UNK UKN, UNK
  2. GLEEVEC [Suspect]
     Dosage: UNK UKN, FOR TWO WEEKS
     Dates: start: 201301

REACTIONS (6)
  - Pyrexia [Unknown]
  - Adverse drug reaction [Unknown]
  - Arrhythmia [Unknown]
  - Loss of consciousness [Unknown]
  - Fall [Unknown]
  - Chills [Unknown]
